FAERS Safety Report 20975300 (Version 1)
Quarter: 2022Q2

REPORT INFORMATION
  Report Type: Spontaneous
  Country: US (occurrence: None)
  Receive Date: 20220617
  Receipt Date: 20220617
  Transmission Date: 20220721
  Serious: Yes (Hospitalization)
  Sender: FDA-Public Use
  Company Number: None

PATIENT
  Age: 45 Year
  Sex: Female

DRUGS (1)
  1. REMODULIN [Suspect]
     Active Substance: TREPROSTINIL
     Indication: Pulmonary arterial hypertension
     Dosage: FREQUENCY : DAILY;?
     Route: 048
     Dates: start: 202107

REACTIONS (8)
  - Cardiac failure [None]
  - Product closure issue [None]
  - Product leakage [None]
  - Suspected product quality issue [None]
  - Incorrect dose administered by device [None]
  - Drug intolerance [None]
  - Diarrhoea [None]
  - Device alarm issue [None]

NARRATIVE: CASE EVENT DATE: 20220601
